FAERS Safety Report 9748400 (Version 1)
Quarter: 2013Q4

REPORT INFORMATION
  Report Type: Report from Study
  Country: US (occurrence: US)
  Receive Date: 20131212
  Receipt Date: 20131212
  Transmission Date: 20140711
  Serious: Yes (Death, Other)
  Sender: FDA-Public Use
  Company Number: PHEH2013US025623

PATIENT
  Sex: Female

DRUGS (1)
  1. ZOMETA [Suspect]
     Indication: METASTASES TO BONE
     Dosage: 4 MG, UNK

REACTIONS (4)
  - Metastases to bone [Fatal]
  - Malignant neoplasm progression [Fatal]
  - General physical health deterioration [Unknown]
  - Malaise [Unknown]
